FAERS Safety Report 11768924 (Version 1)
Quarter: 2015Q4

REPORT INFORMATION
  Report Type: Spontaneous
  Country: FR (occurrence: FR)
  Receive Date: 20151123
  Receipt Date: 20151123
  Transmission Date: 20160304
  Serious: Yes (Hospitalization)
  Sender: FDA-Public Use
  Company Number: FR-PFIZER INC-2015385458

PATIENT
  Age: 66 Year
  Sex: Male

DRUGS (13)
  1. ROCEPHINE [Concomitant]
     Active Substance: CEFTRIAXONE SODIUM
     Indication: LUNG DISORDER
  2. ZYVOXID [Suspect]
     Active Substance: LINEZOLID
     Indication: LUNG DISORDER
     Dosage: 600 MG, 2X/DAY
     Route: 048
     Dates: start: 20151015, end: 20151026
  3. ROCEPHINE [Concomitant]
     Active Substance: CEFTRIAXONE SODIUM
     Indication: SEPSIS
     Dosage: UNK
     Dates: start: 201510, end: 201510
  4. VANCOMYCIN [Concomitant]
     Active Substance: VANCOMYCIN
     Indication: LUNG DISORDER
     Dosage: UNK
     Dates: start: 201510, end: 201510
  5. GENTALLINE [Concomitant]
     Active Substance: GENTAMICIN SULFATE
     Indication: SEPSIS
  6. ROVAMYCINE /00074401/ [Concomitant]
     Active Substance: SPIRAMYCIN
     Indication: SEPSIS
     Dosage: UNK
     Dates: start: 201510, end: 201510
  7. GENTALLINE [Concomitant]
     Active Substance: GENTAMICIN SULFATE
     Indication: STAPHYLOCOCCAL INFECTION
  8. ROVAMYCINE /00074401/ [Concomitant]
     Active Substance: SPIRAMYCIN
     Indication: LUNG DISORDER
  9. VANCOMYCIN [Concomitant]
     Active Substance: VANCOMYCIN
     Indication: SEPSIS
  10. VANCOMYCIN [Concomitant]
     Active Substance: VANCOMYCIN
     Indication: STAPHYLOCOCCAL INFECTION
  11. ZYVOXID [Suspect]
     Active Substance: LINEZOLID
     Indication: SEPSIS
  12. ZYVOXID [Suspect]
     Active Substance: LINEZOLID
     Indication: STAPHYLOCOCCAL INFECTION
  13. GENTALLINE [Concomitant]
     Active Substance: GENTAMICIN SULFATE
     Indication: LUNG DISORDER
     Dosage: UNK
     Dates: start: 201510, end: 201510

REACTIONS (1)
  - Acute generalised exanthematous pustulosis [Recovered/Resolved]

NARRATIVE: CASE EVENT DATE: 20151021
